FAERS Safety Report 9414543 (Version 3)
Quarter: 2013Q4

REPORT INFORMATION
  Report Type: Spontaneous
  Country: GB (occurrence: GB)
  Receive Date: 20130723
  Receipt Date: 20131022
  Transmission Date: 20140711
  Serious: Yes (Death, Other)
  Sender: FDA-Public Use
  Company Number: PHFR2013GB004165

PATIENT
  Sex: Female

DRUGS (4)
  1. CUBICIN [Suspect]
     Indication: ENDOCARDITIS
     Dosage: 6 MG/KG, QOD
     Dates: start: 20130222
  2. MEROPENEM [Suspect]
  3. LINOZID [Suspect]
  4. SODIUM FUSIDAT [Suspect]

REACTIONS (8)
  - Death [Fatal]
  - Neurotoxicity [Recovered/Resolved]
  - Somnolence [Unknown]
  - Splenic embolism [Unknown]
  - Pulmonary mass [Unknown]
  - Cardiac valve vegetation [Unknown]
  - Thrombocytopenia [Recovered/Resolved]
  - Anaemia [Recovered/Resolved]
